FAERS Safety Report 4688003-3 (Version None)
Quarter: 2005Q2

REPORT INFORMATION
  Report Type: 
  Country: None (occurrence: None)
  Receive Date: 20050608
  Receipt Date: 20050531
  Transmission Date: 20051028
  Serious: Yes (Hospitalization)
  Sender: FDA-Public Use
  Company Number: 200416243BCC

PATIENT
  Age: 47 Year
  Sex: Male

DRUGS (2)
  1. ALEVE (CAPLET) [Suspect]
     Indication: ARTHRALGIA
     Dosage: 220 MG, BIW, ORAL
     Route: 048
  2. ALBUTEROL [Concomitant]

REACTIONS (1)
  - CHEST PAIN [None]
